FAERS Safety Report 9801201 (Version 1)
Quarter: 2014Q1

REPORT INFORMATION
  Report Type: Spontaneous
  Country: FR (occurrence: FR)
  Receive Date: 20140107
  Receipt Date: 20140107
  Transmission Date: 20141002
  Serious: Yes (Other)
  Sender: FDA-Public Use
  Company Number: FR-PFIZER INC-2014001691

PATIENT
  Age: 85 Year
  Sex: Male

DRUGS (10)
  1. INSPRA [Suspect]
     Indication: HYPERTENSION
     Dosage: UNK
     Route: 048
     Dates: end: 20130812
  2. ATACAND [Suspect]
     Indication: HYPERTENSION
     Dosage: UNK
     Route: 048
     Dates: end: 20130812
  3. LASILIX - SLOW RELEASE [Concomitant]
     Dosage: 60 MG, 1X/DAY
     Route: 048
  4. ORMANDYL [Concomitant]
     Dosage: 50 MG, UNK
     Route: 048
  5. SINGULAIR [Concomitant]
     Route: 055
  6. SYMBICORT TURBUHALER [Concomitant]
     Route: 055
  7. TAMSULOSIN [Concomitant]
     Dosage: 0.4 MG, 1X/DAY
     Route: 048
  8. DISCOTRINE [Concomitant]
     Dosage: 1 DF, DAILY
     Route: 062
  9. KARDEGIC [Concomitant]
     Dosage: 75 MG, 1X/DAY
     Route: 048
  10. CARDENSIEL [Concomitant]
     Dosage: 2.5 MG, 1X/DAY
     Route: 048

REACTIONS (2)
  - Fall [Unknown]
  - Spinal pain [Unknown]
